FAERS Safety Report 11597866 (Version 1)
Quarter: 2015Q3

REPORT INFORMATION
  Report Type: Spontaneous
  Country: US (occurrence: US)
  Receive Date: 20150916
  Receipt Date: 20150916
  Transmission Date: 20151125
  Serious: No
  Sender: FDA-Public Use
  Company Number: US-ELI_LILLY_AND_COMPANY-US200801002288

PATIENT
  Age: 62 Year
  Sex: Female

DRUGS (5)
  1. ESTROVEN                           /02150801/ [Concomitant]
  2. CALCIUM [Concomitant]
     Active Substance: CALCIUM
  3. CITRACAL [Concomitant]
     Active Substance: CALCIUM CITRATE
  4. VITAMINS [Concomitant]
     Active Substance: VITAMINS
  5. FORTEO [Suspect]
     Active Substance: TERIPARATIDE
     Indication: OSTEOPOROSIS
     Dates: start: 20071219

REACTIONS (9)
  - Injection site bruising [Recovered/Resolved]
  - Malaise [Recovered/Resolved]
  - Vomiting [Recovered/Resolved]
  - Eye swelling [Recovered/Resolved]
  - Hypertension [Recovered/Resolved]
  - Injection site erosion [Not Recovered/Not Resolved]
  - Injection site haemorrhage [Not Recovered/Not Resolved]
  - Migraine [Recovered/Resolved]
  - Nausea [Recovered/Resolved]

NARRATIVE: CASE EVENT DATE: 20071219
